FAERS Safety Report 6402345-2 (Version None)
Quarter: 2009Q4

REPORT INFORMATION
  Report Type: 
  Country: None (occurrence: None)
  Receive Date: 20091013
  Receipt Date: 20091001
  Transmission Date: 20100525
  Serious: Yes (Other)
  Sender: FDA-Public Use
  Company Number: PAR_03203_2009

PATIENT
  Age: 3 Year
  Sex: Female
  Weight: 9.0719 kg

DRUGS (4)
  1. MEGACE ES [Suspect]
     Indication: DECREASED APPETITE
     Dosage: SEE IMAGE
     Route: 048
     Dates: start: 20090101, end: 20090101
  2. MEGACE ES [Suspect]
     Indication: DECREASED APPETITE
     Dosage: SEE IMAGE
     Route: 048
     Dates: start: 20090608, end: 20090701
  3. MEGACE ES [Suspect]
     Indication: DECREASED APPETITE
     Dosage: SEE IMAGE
     Route: 048
     Dates: start: 20090101, end: 20090924
  4. GENOTROPIN [Concomitant]

REACTIONS (9)
  - DIARRHOEA [None]
  - DRUG ADMINISTRATION ERROR [None]
  - DRUG DISPENSING ERROR [None]
  - FAECES DISCOLOURED [None]
  - INCORRECT DOSE ADMINISTERED [None]
  - INSOMNIA [None]
  - IRRITABILITY [None]
  - LABORATORY TEST ABNORMAL [None]
  - PERSONALITY CHANGE [None]
